FAERS Safety Report 7176675-3 (Version None)
Quarter: 2010Q4

REPORT INFORMATION
  Report Type: 
  Country: None (occurrence: None)
  Receive Date: 20101220
  Receipt Date: 20101208
  Transmission Date: 20110411
  Serious: Yes (Other)
  Sender: FDA-Public Use
  Company Number: US-JNJFOC-20101204998

PATIENT
  Age: 78 Year
  Sex: Female
  Weight: 68.04 kg

DRUGS (2)
  1. TYLENOL (CAPLET) [Suspect]
     Route: 048
  2. TYLENOL (CAPLET) [Suspect]
     Indication: ARTHRITIS
     Dosage: DOSE UNKNOWN, 2 TO 3 TIMES PER WEEK
     Route: 048

REACTIONS (3)
  - BACTERIAL INFECTION [None]
  - EXPIRED DRUG ADMINISTERED [None]
  - TRANSMISSION OF AN INFECTIOUS AGENT VIA A MEDICINAL PRODUCT [None]
